FAERS Safety Report 9522956 (Version 1)
Quarter: 2013Q3

REPORT INFORMATION
  Report Type: Spontaneous
  Country: DE (occurrence: None)
  Receive Date: 20130911
  Receipt Date: 20130911
  Transmission Date: 20140515
  Serious: No
  Sender: FDA-Public Use
  Company Number: AEDEU201200464

PATIENT
  Age: 74 Year
  Sex: Male
  Weight: 90 kg

DRUGS (7)
  1. GAMUNEX [Suspect]
     Indication: CHRONIC INFLAMMATORY DEMYELINATING POLYRADICULONEUROPATHY
     Route: 042
     Dates: start: 20120927, end: 20120927
  2. METHOTREXATE [Concomitant]
  3. MARCUMAR [Concomitant]
  4. ENALAPRIL [Concomitant]
  5. METOPROLOL [Concomitant]
  6. TORASEMID [Concomitant]
  7. DIGIMERCK [Concomitant]

REACTIONS (1)
  - Type IV hypersensitivity reaction [None]
